FAERS Safety Report 4667821-1 (Version None)
Quarter: 2005Q2

REPORT INFORMATION
  Report Type: 
  Country: None (occurrence: None)
  Receive Date: 20050520
  Receipt Date: 20041116
  Transmission Date: 20051028
  Serious: Yes (Hospitalization)
  Sender: FDA-Public Use
  Company Number: PL-SANOFI-SYNTHELABO-D01200404805

PATIENT
  Sex: Male
  Weight: 53 kg

DRUGS (4)
  1. SR57746 OR PLACEBO [Suspect]
     Indication: CHEMOTHERAPY NEUROTOXICITY ATTENUATION
     Route: 048
     Dates: start: 20040428, end: 20041016
  2. OXALIPLATIN [Suspect]
     Route: 042
     Dates: start: 20041026, end: 20041026
  3. FLUOROURACIL [Suspect]
     Dosage: 400 MG/M2 AS IV BOLUS THEN 600 MG/M2 AS 22 HOURS CONTINUOUS INFUSION D1-D2 Q2W
     Route: 042
     Dates: start: 20041026, end: 20041027
  4. LEUCOVORIN CALCIUM [Suspect]
     Dosage: 200 MG/M2 AS 2 HOURS INFUSION ON D1-D2 Q2W
     Route: 042
     Dates: start: 20041026, end: 20041027

REACTIONS (3)
  - BRONCHOPNEUMONIA [None]
  - CANDIDIASIS [None]
  - STAPHYLOCOCCAL INFECTION [None]
